FAERS Safety Report 18292185 (Version 1)
Quarter: 2020Q3

REPORT INFORMATION
  Report Type: Spontaneous
  Country: US (occurrence: US)
  Receive Date: 20200922
  Receipt Date: 20200922
  Transmission Date: 20201103
  Serious: No
  Sender: FDA-Public Use
  Company Number: US-TEVA-2020-US-1827705

PATIENT
  Age: 48 Year
  Sex: Female

DRUGS (7)
  1. VITAMIN D 50 000 IU [Concomitant]
  2. GEODON [Concomitant]
     Active Substance: ZIPRASIDONE HYDROCHLORIDE\ZIPRASIDONE MESYLATE
  3. AUSTEDO [Suspect]
     Active Substance: DEUTETRABENAZINE
     Indication: TARDIVE DYSKINESIA
     Route: 065
  4. AUSTEDO [Suspect]
     Active Substance: DEUTETRABENAZINE
     Dosage: 18 MILLIGRAM DAILY;
     Route: 065
     Dates: start: 20200904
  5. FLONASE [Concomitant]
     Active Substance: FLUTICASONE PROPIONATE
  6. LEXAPRO [Concomitant]
     Active Substance: ESCITALOPRAM OXALATE
  7. AUSTEDO [Suspect]
     Active Substance: DEUTETRABENAZINE
     Dosage: 24 MILLIGRAM DAILY;
     Route: 065
     Dates: start: 20200813, end: 20200904

REACTIONS (4)
  - Muscle tightness [Recovering/Resolving]
  - Extremity contracture [Recovering/Resolving]
  - Panic reaction [Recovering/Resolving]
  - Panic attack [Recovering/Resolving]
